FAERS Safety Report 8093218-0 (Version None)
Quarter: 2012Q1

REPORT INFORMATION
  Report Type: 
  Country: None (occurrence: None)
  Receive Date: 20120128
  Receipt Date: 20110914
  Transmission Date: 20120608
  Serious: No
  Sender: FDA-Public Use
  Company Number: US-ABBOTT-11P-163-0703740-00

PATIENT
  Sex: Female
  Weight: 59.02 kg

DRUGS (4)
  1. HUMIRA [Suspect]
     Route: 058
     Dates: start: 20101001
  2. HUMIRA [Suspect]
     Indication: CROHN'S DISEASE
     Dates: start: 20091201, end: 20100801
  3. HUMIRA [Suspect]
     Route: 058
     Dates: start: 20110708
  4. MULTI-VITAMINS [Concomitant]
     Indication: PRODUCT USED FOR UNKNOWN INDICATION
     Route: 048

REACTIONS (5)
  - INJECTION SITE HAEMATOMA [None]
  - GASTROOESOPHAGEAL REFLUX DISEASE [None]
  - INJECTION SITE HAEMORRHAGE [None]
  - INJECTION SITE VESICLES [None]
  - DRUG DOSE OMISSION [None]
